FAERS Safety Report 21530081 (Version 1)
Quarter: 2022Q4

REPORT INFORMATION
  Report Type: Report from Study
  Country: US (occurrence: US)
  Receive Date: 20221031
  Receipt Date: 20221031
  Transmission Date: 20230113
  Serious: No
  Sender: FDA-Public Use
  Company Number: US-ABBVIE-4149098

PATIENT
  Sex: Female

DRUGS (1)
  1. ORIAHNN [Suspect]
     Active Substance: ELAGOLIX SODIUM\ESTRADIOL\NORETHINDRONE
     Indication: Uterine leiomyoma
     Dosage: ORIAHNN ONE CAPSULE FOR MORNING ONE FOR EVENING AND  FREQUENCY 1 IN 1 DAY
     Route: 048

REACTIONS (1)
  - Hot flush [Recovering/Resolving]
